FAERS Safety Report 4432233-2 (Version None)
Quarter: 2004Q3

REPORT INFORMATION
  Report Type: 
  Country: None (occurrence: None)
  Receive Date: 20040825
  Receipt Date: 20040818
  Transmission Date: 20050211
  Serious: Yes (Death)
  Sender: FDA-Public Use
  Company Number: US-ROCHE-378204

PATIENT
  Age: 94 Year
  Sex: Female

DRUGS (3)
  1. ROCEPHIN [Suspect]
     Indication: URINARY TRACT INFECTION
     Route: 042
     Dates: start: 20040815, end: 20040815
  2. VITAMIN K TAB [Suspect]
     Route: 042
     Dates: start: 20040815, end: 20040815
  3. COUMADIN [Concomitant]
     Indication: ATRIAL FIBRILLATION
     Route: 048

REACTIONS (7)
  - ADVERSE DRUG REACTION [None]
  - HYPERHIDROSIS [None]
  - HYPOTENSION [None]
  - MULTI-ORGAN FAILURE [None]
  - PALLOR [None]
  - RESPIRATORY RATE INCREASED [None]
  - SEPSIS [None]
